FAERS Safety Report 8834535 (Version 2)
Quarter: 2012Q4

REPORT INFORMATION
  Report Type: 
  Country: BR (occurrence: BR)
  Receive Date: 20121010
  Receipt Date: 20121112
  Transmission Date: 20130627
  Serious: Yes (Hospitalization)
  Sender: FDA-Public Use
  Company Number: BR-ASTRAZENECA-2012SE76323

PATIENT
  Age: 906 Month
  Sex: Female
  Weight: 77 kg

DRUGS (4)
  1. ATENOLOL [Suspect]
     Indication: HYPERTENSION
     Dosage: DAILY
     Route: 048
  2. CRESTOR [Suspect]
     Indication: CAROTID ARTERY OCCLUSION
     Route: 048
     Dates: start: 2011
  3. TORLOS [Concomitant]
     Indication: HYPERTENSION
     Route: 048
  4. LOSARTAN [Concomitant]
     Indication: HYPERTENSION
     Route: 048

REACTIONS (1)
  - Coronary artery occlusion [Recovered/Resolved]
